FAERS Safety Report 8716291 (Version 4)
Quarter: 2012Q4

REPORT INFORMATION
  Report Type: 
  Country: US (occurrence: US)
  Receive Date: 20120810
  Receipt Date: 20121214
  Transmission Date: 20130627
  Serious: Yes (Hospitalization, Other)
  Sender: FDA-Public Use
  Company Number: US-MERCK-1208USA002367

PATIENT
  Age: 56 None
  Sex: Female
  Weight: 68.27 kg

DRUGS (3)
  1. PEGINTRON [Suspect]
     Indication: HEPATITIS C
     Dosage: UNK
     Route: 058
     Dates: start: 20120622, end: 20121114
  2. RIBAVIRIN [Suspect]
     Indication: HEPATITIS C
     Dosage: UNK
     Route: 058
     Dates: start: 20120622, end: 20121114
  3. VICTRELIS [Suspect]
     Indication: HEPATITIS C
     Dosage: UNK
     Route: 058
     Dates: start: 20120720, end: 20121114

REACTIONS (16)
  - Transfusion [Unknown]
  - Throat lesion [Unknown]
  - Thrombosis [Unknown]
  - Platelet transfusion [Unknown]
  - Ascites [Unknown]
  - Vomiting [Unknown]
  - Weight decreased [Unknown]
  - Hypersomnia [Unknown]
  - Weight decreased [Unknown]
  - Dyspnoea [Unknown]
  - Decreased appetite [Unknown]
  - Haemoglobin decreased [Unknown]
  - Fatigue [Not Recovered/Not Resolved]
  - Diarrhoea [Recovered/Resolved]
  - Decreased appetite [Unknown]
  - Diarrhoea [Unknown]
